FAERS Safety Report 17675213 (Version 9)
Quarter: 2024Q2

REPORT INFORMATION
  Report Type: Spontaneous
  Country: US (occurrence: None)
  Receive Date: 20200416
  Receipt Date: 20240607
  Transmission Date: 20240716
  Serious: Yes (Other)
  Sender: FDA-Public Use
  Company Number: US-ROCHE-2584051

PATIENT
  Age: 4 Year
  Sex: Male

DRUGS (6)
  1. HEMLIBRA [Suspect]
     Active Substance: EMICIZUMAB-KXWH
     Indication: Factor VIII deficiency
     Dosage: 60MG / 0.4ML. ON 16/SEP/2021, HE RECEIVED MOST RECENT DOSE OF EMICIZUMAB (57 MG)
     Route: 058
     Dates: start: 20191008
  2. HEMLIBRA [Suspect]
     Active Substance: EMICIZUMAB-KXWH
     Route: 058
     Dates: start: 20191008, end: 20210916
  3. HEMLIBRA [Suspect]
     Active Substance: EMICIZUMAB-KXWH
     Route: 058
     Dates: start: 20191007
  4. HEMLIBRA [Suspect]
     Active Substance: EMICIZUMAB-KXWH
     Dosage: 60MG/0.6 ML
     Route: 058
     Dates: start: 20191007
  5. HEMLIBRA [Suspect]
     Active Substance: EMICIZUMAB-KXWH
     Dosage: 60MG/0.6 ML
     Route: 058
     Dates: start: 201910
  6. HEMLIBRA [Suspect]
     Active Substance: EMICIZUMAB-KXWH
     Dosage: 60MG/0.6 ML
     Route: 058
     Dates: start: 201910

REACTIONS (7)
  - Haemorrhage [Unknown]
  - Haemorrhage [Unknown]
  - Head injury [Unknown]
  - Joint injury [Unknown]
  - Face injury [Unknown]
  - Fall [Unknown]
  - Joint swelling [Unknown]

NARRATIVE: CASE EVENT DATE: 20200327
